FAERS Safety Report 16081686 (Version 2)
Quarter: 2019Q1

REPORT INFORMATION
  Report Type: Spontaneous
  Country: PT (occurrence: PT)
  Receive Date: 20190316
  Receipt Date: 20190316
  Transmission Date: 20190418
  Serious: Yes (Hospitalization)
  Sender: FDA-Public Use
  Company Number: PHHY2019PT049335

PATIENT
  Age: 66 Year
  Sex: Male

DRUGS (3)
  1. PREDNISOLONE. [Suspect]
     Active Substance: PREDNISOLONE
     Indication: PRODUCT USED FOR UNKNOWN INDICATION
     Dosage: 1 MG/KG, UNK
     Route: 048
  2. OMEPRAZOLE. [Concomitant]
     Active Substance: OMEPRAZOLE
     Indication: PRODUCT USED FOR UNKNOWN INDICATION
     Dosage: 20 MG, QD
     Route: 065
  3. PREDNISOLONE. [Suspect]
     Active Substance: PREDNISOLONE
     Dosage: 1.5 MG/KG, QD
     Route: 065

REACTIONS (19)
  - Haemophagocytic lymphohistiocytosis [Unknown]
  - Metabolic acidosis [Unknown]
  - Malnutrition [Unknown]
  - Acute respiratory failure [Unknown]
  - Rash maculo-papular [Unknown]
  - Haematuria [Unknown]
  - Hypofibrinogenaemia [Unknown]
  - Pancytopenia [Unknown]
  - Tachypnoea [Unknown]
  - Cachexia [Unknown]
  - Pyrexia [Unknown]
  - Tubulointerstitial nephritis [Unknown]
  - Cytomegalovirus infection [Unknown]
  - Hypertriglyceridaemia [Unknown]
  - Epstein-Barr virus infection [Unknown]
  - Condition aggravated [Unknown]
  - Swelling face [Unknown]
  - Leukocyturia [Unknown]
  - Hyperkalaemia [Unknown]
